FAERS Safety Report 16981011 (Version 1)
Quarter: 2019Q4

REPORT INFORMATION
  Report Type: Spontaneous
  Country: CN (occurrence: CN)
  Receive Date: 20191031
  Receipt Date: 20191031
  Transmission Date: 20200122
  Serious: Yes (Life-Threatening, Hospitalization)
  Sender: FDA-Public Use
  Company Number: CN-ELI_LILLY_AND_COMPANY-CN201910015160

PATIENT
  Age: 75 Year
  Sex: Female

DRUGS (1)
  1. FORSTEO [Suspect]
     Active Substance: TERIPARATIDE
     Indication: OSTEOPOROSIS
     Dosage: 20 UG, DAILY
     Route: 058
     Dates: start: 20190821, end: 20191001

REACTIONS (5)
  - Decreased appetite [Recovering/Resolving]
  - Renal failure [Recovering/Resolving]
  - Hepatic failure [Recovering/Resolving]
  - Nausea [Recovering/Resolving]
  - Pneumonia [Recovering/Resolving]
